FAERS Safety Report 7238085-X (Version None)
Quarter: 2011Q1

REPORT INFORMATION
  Report Type: 
  Country: None (occurrence: None)
  Receive Date: 20110121
  Receipt Date: 20110118
  Transmission Date: 20110831
  Serious: Yes (Death)
  Sender: FDA-Public Use
  Company Number: B0694530A

PATIENT
  Age: 35 Year
  Sex: Male

DRUGS (3)
  1. FLOLAN [Suspect]
     Route: 065
  2. SILDENAFIL [Concomitant]
     Indication: PULMONARY HYPERTENSION
     Dosage: 20MG THREE TIMES PER DAY
  3. BOSENTAN [Concomitant]
     Indication: PULMONARY HYPERTENSION
     Dosage: 125MG PER DAY
     Route: 065

REACTIONS (1)
  - DYSPNOEA [None]
